FAERS Safety Report 9503571 (Version 1)
Quarter: 2013Q3

REPORT INFORMATION
  Report Type: Spontaneous
  Country: US (occurrence: None)
  Receive Date: 20130905
  Receipt Date: 20130905
  Transmission Date: 20140515
  Serious: No
  Sender: FDA-Public Use
  Company Number: None

PATIENT
  Age: 63 None
  Sex: Male
  Weight: 95 kg

DRUGS (18)
  1. GAMMAGLOBULIN [Suspect]
     Route: 058
  2. HIZENTRA [Concomitant]
  3. CLONAZEPAM [Concomitant]
  4. LAMICTAL [Concomitant]
  5. EMSAM [Concomitant]
  6. SYNTHROID [Concomitant]
  7. SIMVASTATIN [Concomitant]
  8. ASPIRIN [Concomitant]
  9. FELCAINIDE [Concomitant]
  10. RESTASIS [Concomitant]
  11. RECLAST [Concomitant]
  12. OMEPRAZOLE [Concomitant]
  13. VITAMIN B12 [Concomitant]
  14. FOLIC ACID [Concomitant]
  15. FISH OIL [Concomitant]
  16. SELENIUM [Concomitant]
  17. MULTI-VITAMIN [Concomitant]
  18. VITAMIN D [Concomitant]

REACTIONS (2)
  - Paraesthesia [None]
  - Vibratory sense increased [None]
